FAERS Safety Report 10247530 (Version 1)
Quarter: 2014Q2

REPORT INFORMATION
  Report Type: Report from Study
  Country: IN (occurrence: IN)
  Receive Date: 20140619
  Receipt Date: 20140619
  Transmission Date: 20141212
  Serious: Yes (Death)
  Sender: FDA-Public Use
  Company Number: IN-INCYTE CORPORATION-2014IN001621

PATIENT
  Age: 64 Year
  Sex: Male

DRUGS (1)
  1. JAKAVI [Suspect]
     Indication: MYELOFIBROSIS
     Dosage: 5 MG, BID
     Route: 048
     Dates: start: 20131113

REACTIONS (2)
  - Myocardial infarction [Fatal]
  - Brain injury [Fatal]
